FAERS Safety Report 11918348 (Version 1)
Quarter: 2016Q1

REPORT INFORMATION
  Report Type: Spontaneous
  Country: NO (occurrence: NO)
  Receive Date: 20160115
  Receipt Date: 20160115
  Transmission Date: 20160526
  Serious: Yes (Hospitalization, Disabling)
  Sender: FDA-Public Use
  Company Number: NO-ROCHE-1692688

PATIENT
  Age: 41 Year
  Sex: Male

DRUGS (1)
  1. TAMIFLU [Suspect]
     Active Substance: OSELTAMIVIR PHOSPHATE
     Indication: H1N1 INFLUENZA
     Dosage: FOR 5 DAYS
     Route: 065
     Dates: start: 20090629

REACTIONS (12)
  - Bowel movement irregularity [Unknown]
  - Nausea [Unknown]
  - Pyrexia [Unknown]
  - Headache [Unknown]
  - Cough [Unknown]
  - Oropharyngeal pain [Unknown]
  - Arthralgia [Unknown]
  - Chills [Unknown]
  - Subarachnoid haemorrhage [Unknown]
  - Musculoskeletal stiffness [Unknown]
  - Vomiting [Unknown]
  - Photosensitivity reaction [Unknown]
